FAERS Safety Report 13950844 (Version 1)
Quarter: 2017Q3

REPORT INFORMATION
  Report Type: Report from Study
  Country: None (occurrence: AR)
  Receive Date: 20170908
  Receipt Date: 20170908
  Transmission Date: 20171128
  Serious: Yes (Death, Other)
  Sender: FDA-Public Use
  Company Number: AR-ABBVIE-17P-007-2092870-00

PATIENT
  Age: 83 Year
  Sex: Female

DRUGS (1)
  1. ZEMPLAR [Suspect]
     Active Substance: PARICALCITOL
     Indication: HYPERPARATHYROIDISM SECONDARY
     Route: 042
     Dates: start: 20140526

REACTIONS (4)
  - Hip fracture [Recovering/Resolving]
  - Haemodialysis complication [Unknown]
  - Sudden death [Fatal]
  - Pain [Unknown]

NARRATIVE: CASE EVENT DATE: 20170820
